FAERS Safety Report 7115678-1 (Version None)
Quarter: 2010Q4

REPORT INFORMATION
  Report Type: 
  Country: None (occurrence: None)
  Receive Date: 20101122
  Receipt Date: 20101110
  Transmission Date: 20110411
  Serious: Yes (Hospitalization, Other)
  Sender: FDA-Public Use
  Company Number: PHHY2010ES76063

PATIENT
  Age: 42 Year
  Sex: Female

DRUGS (4)
  1. CYCLOSPORINE [Suspect]
     Indication: RENAL TRANSPLANT
     Dosage: UNK
     Dates: start: 20040101, end: 20080101
  2. STEROIDS NOS [Suspect]
     Indication: RENAL TRANSPLANT
  3. MYCOPHENOLATE MOFETIL [Suspect]
     Indication: RENAL TRANSPLANT
  4. POLYCLONAL ANTIBODIES [Suspect]
     Indication: IMMUNOSUPPRESSION

REACTIONS (10)
  - ABORTION SPONTANEOUS [None]
  - CAESAREAN SECTION [None]
  - COMPLICATIONS OF TRANSPLANTED KIDNEY [None]
  - DRUG EXPOSURE DURING PREGNANCY [None]
  - PREGNANCY [None]
  - PROTEINURIA [None]
  - PYELOCALIECTASIS [None]
  - RENAL ATROPHY [None]
  - RENAL FAILURE CHRONIC [None]
  - URINE OUTPUT DECREASED [None]
